FAERS Safety Report 10304269 (Version 4)
Quarter: 2014Q3

REPORT INFORMATION
  Report Type: Spontaneous
  Country: IT (occurrence: IT)
  Receive Date: 20140714
  Receipt Date: 20140922
  Transmission Date: 20150326
  Serious: Yes (Other)
  Sender: FDA-Public Use
  Company Number: IT-009507513-1407ITA002124

PATIENT
  Age: 75 Year
  Sex: Female

DRUGS (7)
  1. METOPROLOL [Concomitant]
     Active Substance: METOPROLOL
  2. TAPENTADOL HYDROCHLORIDE [Concomitant]
     Active Substance: TAPENTADOL HYDROCHLORIDE
     Route: 048
  3. PANTOPRAZOLE [Concomitant]
     Active Substance: PANTOPRAZOLE SODIUM
  4. BACTRIM [Suspect]
     Active Substance: SULFAMETHOXAZOLE\TRIMETHOPRIM
     Indication: URINARY TRACT INFECTION
     Dosage: TOTAL DAILY DOSE 1920MG, DAILY
     Route: 048
     Dates: start: 20140619, end: 20140624
  5. ALLOPURINOL. [Concomitant]
     Active Substance: ALLOPURINOL
  6. MIRTAZAPINE. [Suspect]
     Active Substance: MIRTAZAPINE
     Indication: DEPRESSION
     Dosage: TOTAL DAILY DOSE: 7.5MG, DAILY
     Route: 048
     Dates: start: 20140616, end: 20140628
  7. FUROSEMIDE. [Concomitant]
     Active Substance: FUROSEMIDE

REACTIONS (2)
  - Oral mucosa erosion [Recovered/Resolved]
  - Corrosive oropharyngeal injury [Recovered/Resolved]

NARRATIVE: CASE EVENT DATE: 20140621
